FAERS Safety Report 16751789 (Version 4)
Quarter: 2020Q1

REPORT INFORMATION
  Report Type: Report from Study
  Country: JP (occurrence: JP)
  Receive Date: 20190828
  Receipt Date: 20200318
  Transmission Date: 20200409
  Serious: Yes (Hospitalization)
  Sender: FDA-Public Use
  Company Number: JP-ASTRAZENECA-2019SF05148

PATIENT
  Age: 887 Month
  Sex: Male

DRUGS (24)
  1. URSO [Concomitant]
     Active Substance: URSODIOL
     Indication: ALCOHOLIC LIVER DISEASE
     Route: 048
     Dates: end: 20191003
  2. URSO [Concomitant]
     Active Substance: URSODIOL
     Indication: ALCOHOLIC LIVER DISEASE
     Route: 048
     Dates: start: 20191014
  3. LANSOPRAZOLE. [Concomitant]
     Active Substance: LANSOPRAZOLE
     Indication: GASTRIC ULCER
     Route: 048
  4. PROEMEND [Concomitant]
     Active Substance: FOSAPREPITANT
     Indication: PROPHYLAXIS OF NAUSEA AND VOMITING
     Dosage: 150.0MG AS REQUIRED
     Route: 042
     Dates: start: 20190711
  5. MAGNESIUM SULFATE CORRECTIVE INJECTION [Concomitant]
     Indication: PROPHYLAXIS
     Dosage: 20.0MEQ AS REQUIRED
     Route: 042
     Dates: start: 20190711
  6. ALLOPURINOL. [Concomitant]
     Active Substance: ALLOPURINOL
     Indication: GOUT
     Dosage: 100.0MG AS REQUIRED
     Route: 048
     Dates: start: 20191014
  7. LANSOPRAZOLE. [Concomitant]
     Active Substance: LANSOPRAZOLE
     Indication: GASTRIC ULCER
     Route: 048
     Dates: start: 20191014
  8. GASTER [Concomitant]
     Active Substance: FAMOTIDINE
     Indication: GASTRITIS PROPHYLAXIS
     Dosage: 20.0MG AS REQUIRED
     Route: 042
     Dates: start: 20190711
  9. GEMCITABINE. [Suspect]
     Active Substance: GEMCITABINE
     Indication: BLADDER CANCER
     Dosage: 1719.0MG ONCE/SINGLE ADMINISTRATION
     Route: 065
     Dates: start: 20190711, end: 20190711
  10. COLCHICINE. [Concomitant]
     Active Substance: COLCHICINE
     Indication: GOUT
     Dosage: 0.5MG AS REQUIRED
     Route: 048
     Dates: end: 20190929
  11. DEXART [Concomitant]
     Active Substance: DEXAMETHASONE SODIUM PHOSPHATE
     Indication: PROPHYLAXIS OF NAUSEA AND VOMITING
     Dosage: 9.9MG AS REQUIRED
     Route: 042
     Dates: start: 20190711
  12. MEDI4736 [Suspect]
     Active Substance: DURVALUMAB
     Indication: BLADDER CANCER
     Dosage: 1500.0MG ONCE/SINGLE ADMINISTRATION
     Route: 042
     Dates: start: 20190711, end: 20190711
  13. TRAZODONE [Concomitant]
     Active Substance: TRAZODONE HYDROCHLORIDE
     Indication: INSOMNIA
     Dosage: 25.0MG AS REQUIRED
     Route: 048
     Dates: start: 20190711, end: 20190715
  14. ALOXI [Concomitant]
     Active Substance: PALONOSETRON HYDROCHLORIDE
     Indication: PROPHYLAXIS OF NAUSEA AND VOMITING
     Dosage: 0.75MG AS REQUIRED
     Route: 042
     Dates: start: 20190711
  15. GEMCITABINE. [Suspect]
     Active Substance: GEMCITABINE
     Indication: BLADDER CANCER
     Dosage: 1719.0MG ONCE/SINGLE ADMINISTRATION
     Route: 065
     Dates: start: 20190820, end: 20190820
  16. ALLOPURINOL. [Concomitant]
     Active Substance: ALLOPURINOL
     Indication: GOUT
     Dosage: 100.0MG AS REQUIRED
     Route: 048
     Dates: end: 20191003
  17. MUCOSTA [Concomitant]
     Active Substance: REBAMIPIDE
     Indication: GASTRITIS
     Dosage: 100.0MG AS REQUIRED
     Route: 048
     Dates: end: 20190709
  18. LOXOPROFEN NA [Concomitant]
     Active Substance: LOXOPROFEN SODIUM
     Indication: GOUT
     Dosage: 60.0MG AS REQUIRED
     Route: 048
     Dates: start: 20190710, end: 20190718
  19. FUROSEMIDE. [Concomitant]
     Active Substance: FUROSEMIDE
     Indication: PROPHYLAXIS
     Dosage: 20.0MG AS REQUIRED
     Route: 042
     Dates: start: 20190712
  20. CISPLATIN. [Suspect]
     Active Substance: CISPLATIN
     Indication: BLADDER CANCER
     Dosage: 60.0MG ONCE/SINGLE ADMINISTRATION
     Route: 065
     Dates: start: 20190711, end: 20190711
  21. CISPLATIN. [Suspect]
     Active Substance: CISPLATIN
     Indication: BLADDER CANCER
     Dosage: 60.0MG ONCE/SINGLE ADMINISTRATION
     Route: 065
     Dates: start: 20190820, end: 20190820
  22. REBAMIPIDE [Concomitant]
     Active Substance: REBAMIPIDE
     Indication: GASTRITIS
     Dosage: 100.0MG AS REQUIRED
     Route: 048
     Dates: start: 20190710, end: 20190718
  23. LOXONIN [Concomitant]
     Active Substance: LOXOPROFEN SODIUM
     Indication: GOUT
     Dosage: 60.0MG AS REQUIRED
     Route: 048
     Dates: end: 20190709
  24. DEXART [Concomitant]
     Active Substance: DEXAMETHASONE SODIUM PHOSPHATE
     Indication: PROPHYLAXIS OF NAUSEA AND VOMITING
     Dosage: 6.6MG AS REQUIRED
     Route: 042
     Dates: start: 20190712

REACTIONS (1)
  - Colitis ischaemic [Recovered/Resolved]

NARRATIVE: CASE EVENT DATE: 20190714
